APPROVED DRUG PRODUCT: TRICOR (MICRONIZED)
Active Ingredient: FENOFIBRATE
Strength: 134MG **Federal Register determination that product was not discontinued or withdrawn for safety or effectiveness reasons**
Dosage Form/Route: CAPSULE;ORAL
Application: N019304 | Product #003
Applicant: ABBVIE INC
Approved: Jun 30, 1999 | RLD: Yes | RS: No | Type: DISCN